FAERS Safety Report 7544559-4 (Version None)
Quarter: 2011Q2

REPORT INFORMATION
  Report Type: 
  Country: None (occurrence: None)
  Receive Date: 20110613
  Receipt Date: 20110607
  Transmission Date: 20111010
  Serious: Yes (Life-Threatening, Hospitalization, Other)
  Sender: FDA-Public Use
  Company Number: US-BRISTOL-MYERS SQUIBB COMPANY-15765324

PATIENT
  Age: 68 Year
  Sex: Male

DRUGS (6)
  1. PLACEBO [Suspect]
     Indication: TYPE 2 DIABETES MELLITUS
     Dates: start: 20100614
  2. BLINDED: SAXAGLIPTIN [Suspect]
     Indication: TYPE 2 DIABETES MELLITUS
     Dates: start: 20100614
  3. ASPIRIN [Concomitant]
     Dosage: 1 DF={ 100 MG
  4. NIACIN [Concomitant]
  5. GLYBURIDE [Suspect]
     Indication: DIABETES MELLITUS
  6. NPH INSULIN [Suspect]
     Indication: DIABETES MELLITUS
     Dosage: 1 DF:100 MICRO MOL

REACTIONS (5)
  - PNEUMONIA [None]
  - ACUTE RESPIRATORY FAILURE [None]
  - RENAL FAILURE ACUTE [None]
  - PANCREATITIS ACUTE [None]
  - OPPORTUNISTIC INFECTION [None]
